FAERS Safety Report 7679902-9 (Version None)
Quarter: 2011Q3

REPORT INFORMATION
  Report Type: 
  Country: None (occurrence: None)
  Receive Date: 20110809
  Receipt Date: 20110729
  Transmission Date: 20111222
  Serious: Yes (Hospitalization)
  Sender: FDA-Public Use
  Company Number: 2010SP043248

PATIENT
  Age: 31 Year
  Sex: Female
  Weight: 56.6996 kg

DRUGS (2)
  1. NUVARING [Suspect]
     Indication: CONTRACEPTION
     Dates: start: 20040819, end: 20041001
  2. NEXIUM [Concomitant]

REACTIONS (5)
  - THROMBOSIS [None]
  - PNEUMONIA [None]
  - BLOOD DISORDER [None]
  - PULMONARY EMBOLISM [None]
  - PAIN [None]
